FAERS Safety Report 9557334 (Version 1)
Quarter: 2013Q3

REPORT INFORMATION
  Report Type: Spontaneous
  Country: US (occurrence: None)
  Receive Date: 20130724
  Receipt Date: 20130724
  Transmission Date: 20140515
  Serious: Yes (Other)
  Sender: FDA-Public Use
  Company Number: PHEH2012US010961

PATIENT
  Age: 66 Year
  Sex: Female
  Weight: 56.2 kg

DRUGS (15)
  1. RECLAST (ZOLEDRONATE) SOLUTION FOR INJECTION [Suspect]
     Indication: OSTEOPOROSIS
     Route: 042
     Dates: start: 20120504
  2. ACIPHEX (RABEPRAZOLE SODIUM) [Concomitant]
  3. PAROXETINE (PAROXETINE) [Concomitant]
  4. XANAX (ALPRAZOLAM) [Concomitant]
  5. RYTHMOL (PROPAFENONE) [Concomitant]
  6. QUESTRAN (COLESTYRAMINE) [Concomitant]
  7. FLONASE (FLUTICASONE PROPIONATE) [Concomitant]
  8. CARTIA XT (DILTIAZEM) [Concomitant]
  9. LORATIDINE [Concomitant]
  10. ASA (ACETYLSALICYLIC ACID) [Concomitant]
  11. CALCIUM (CALCIUM) [Concomitant]
  12. VITAMIN D (ERGOCALCIFEROL) [Concomitant]
  13. FISH OIL (FISH OIL) [Concomitant]
  14. MULTIVITAMIN (VITAMINS NOS) [Concomitant]
  15. BIOTIN (BIOTIN) [Concomitant]

REACTIONS (8)
  - Arthralgia [None]
  - Pyrexia [None]
  - Chills [None]
  - Myalgia [None]
  - Red blood cell sedimentation rate increased [None]
  - C-reactive protein increased [None]
  - Joint swelling [None]
  - Erythema [None]
